FAERS Safety Report 7448821-5 (Version None)
Quarter: 2011Q2

REPORT INFORMATION
  Report Type: 
  Country: None (occurrence: None)
  Receive Date: 20110429
  Receipt Date: 20100812
  Transmission Date: 20111010
  Serious: No
  Sender: FDA-Public Use
  Company Number: US-ASTRAZENECA-2010SE37978

PATIENT
  Age: 57 Year
  Sex: Male

DRUGS (7)
  1. METHYLCARBAMOL [Concomitant]
  2. METHADONE [Concomitant]
  3. SPIRIVA [Concomitant]
  4. OXYGEN [Concomitant]
  5. TEMAZEPAM [Concomitant]
  6. NEXIUM [Suspect]
     Indication: GASTRIC DISORDER
     Route: 048
     Dates: start: 20090101, end: 20100701
  7. FENTANYL-100 [Concomitant]

REACTIONS (1)
  - AMNESIA [None]
